FAERS Safety Report 24024735 (Version 1)
Quarter: 2024Q2

REPORT INFORMATION
  Report Type: Report from Study
  Country: IT (occurrence: IT)
  Receive Date: 20240628
  Receipt Date: 20240628
  Transmission Date: 20240715
  Serious: No
  Sender: FDA-Public Use
  Company Number: None

PATIENT
  Age: 72 Year
  Sex: Female
  Weight: 45.0 kg

DRUGS (2)
  1. PHESGO [Suspect]
     Active Substance: HYALURONIDASE-ZZXF\PERTUZUMAB\TRASTUZUMAB
     Indication: Breast cancer metastatic
     Dosage: START OF THERAPY 01/AUG/2023 - 1ST CYCLE - THERAPY EVERY 21 DAYS
     Route: 065
     Dates: start: 20230801, end: 20230801
  2. PACLITAXEL [Suspect]
     Active Substance: PACLITAXEL
     Indication: Breast cancer metastatic
     Dosage: START OF THERAPY 01/AUG/2023 - WEEKLY THERAPY - 1ST CYCLE, 01/AUG/2023 G1, 08/AUG/2023 G8, 16/AUG/20
     Route: 065
     Dates: start: 20230801, end: 20230816

REACTIONS (1)
  - Haemoglobin decreased [Recovering/Resolving]

NARRATIVE: CASE EVENT DATE: 20230823
